FAERS Safety Report 8718270 (Version 2)
Quarter: 2013Q4

REPORT INFORMATION
  Report Type: Spontaneous
  Country: US (occurrence: US)
  Receive Date: 20120810
  Receipt Date: 20131031
  Transmission Date: 20140711
  Serious: No
  Sender: FDA-Public Use
  Company Number: US-009507513-2010SP047367

PATIENT
  Age: 84 Year
  Sex: Male
  Weight: 97.52 kg

DRUGS (11)
  1. MIRALAX [Suspect]
     Indication: CONSTIPATION
     Dosage: UNK UNK, UNKNOWN
     Route: 048
     Dates: start: 20100812, end: 20100813
  2. MIRALAX [Suspect]
     Indication: OBSTRUCTION
     Dosage: UNK UNK, UNKNOWN
     Route: 048
     Dates: start: 20100815
  3. MIRALAX [Suspect]
     Indication: MEDICAL OBSERVATION
     Dosage: UNK UNK, UNKNOWN
     Route: 048
     Dates: start: 20100818
  4. MIRALAX [Suspect]
     Dosage: UNK UNK, UNKNOWN
     Route: 048
     Dates: start: 20100823
  5. MIRALAX [Suspect]
     Dosage: UNK UNK, UNKNOWN
     Route: 048
     Dates: start: 20100825, end: 20100826
  6. MIRALAX [Suspect]
     Dosage: UNK UNK, UNKNOWN
     Route: 048
     Dates: start: 20100828
  7. MIRALAX [Suspect]
     Dosage: UNK UNK, UNKNOWN
     Route: 048
     Dates: start: 201007
  8. ALLEGRA [Concomitant]
  9. SODIUM PHOSPHATE, DIBASIC (+) SODIUM PHOSPHATE, MONOBASIC [Concomitant]
     Dates: start: 20100827
  10. BENEFIBER [Concomitant]
  11. METAMUCIL [Concomitant]

REACTIONS (7)
  - Dry mouth [Recovered/Resolved]
  - Dysgeusia [Recovered/Resolved]
  - Pruritus [Unknown]
  - Constipation [Unknown]
  - Diarrhoea [Recovered/Resolved]
  - Underdose [Unknown]
  - Off label use [Unknown]
